FAERS Safety Report 25608054 (Version 1)
Quarter: 2025Q3

REPORT INFORMATION
  Report Type: Spontaneous
  Country: US (occurrence: US)
  Receive Date: 20250725
  Receipt Date: 20250725
  Transmission Date: 20251020
  Serious: No
  Sender: BRISTOL-MYERS SQUIBB COMPANY
  Company Number: US-BRISTOL-MYERS SQUIBB COMPANY-2025-104622

PATIENT
  Age: 46 Year
  Sex: Male

DRUGS (1)
  1. SPRYCEL [Suspect]
     Active Substance: DASATINIB
     Indication: Chronic myeloid leukaemia

REACTIONS (7)
  - Nausea [Unknown]
  - Myalgia [Unknown]
  - Headache [Unknown]
  - Diarrhoea [Unknown]
  - Rash [Unknown]
  - Feeling abnormal [Unknown]
  - Off label use [Unknown]
